FAERS Safety Report 7542608-0 (Version None)
Quarter: 2011Q2

REPORT INFORMATION
  Report Type: 
  Country: None (occurrence: None)
  Receive Date: 20110613
  Receipt Date: 20110603
  Transmission Date: 20111010
  Serious: Yes (Hospitalization)
  Sender: FDA-Public Use
  Company Number: BR-GILEAD-2011-0039711

PATIENT
  Sex: Male
  Weight: 42.3 kg

DRUGS (13)
  1. PYRAZINAMIDE [Concomitant]
     Indication: TUBERCULOSIS
     Dates: start: 20110407
  2. THIAMINE [Concomitant]
     Indication: SUPPLEMENTATION THERAPY
  3. DIPYRONE [Concomitant]
     Indication: PYREXIA
     Dates: start: 20110513
  4. VITAMIN B6 [Concomitant]
     Indication: SUPPLEMENTATION THERAPY
     Dates: start: 20110502
  5. TENOFOVIR DISOPROXIL FUMARATE [Suspect]
     Indication: HIV INFECTION
     Dates: start: 20110502
  6. LAMIVUDINE [Concomitant]
     Indication: HIV INFECTION
  7. CLARITHROMYCIN [Concomitant]
     Indication: ENTERITIS INFECTIOUS
     Dates: start: 20110401
  8. RALTEGRAVIR [Concomitant]
     Indication: HIV INFECTION
  9. DIAZEPAM [Concomitant]
     Indication: PRODUCT USED FOR UNKNOWN INDICATION
     Dates: start: 20110513
  10. ETHAMBUTOL HYDROCHLORIDE [Concomitant]
     Indication: TUBERCULOSIS
  11. RIFAMPIN [Concomitant]
     Indication: TUBERCULOSIS
     Dates: start: 20110405
  12. ISONIAZID [Concomitant]
     Indication: TUBERCULOSIS
     Dates: start: 20110407
  13. BACTRIM [Concomitant]
     Indication: ANTIFUNGAL PROPHYLAXIS
     Dates: start: 20110502

REACTIONS (5)
  - CONFUSIONAL STATE [None]
  - PRODUCTIVE COUGH [None]
  - BRADYPHRENIA [None]
  - PYREXIA [None]
  - SOMNOLENCE [None]
